FAERS Safety Report 7959139-6 (Version None)
Quarter: 2011Q4

REPORT INFORMATION
  Report Type: 
  Country: None (occurrence: None)
  Receive Date: 20111206
  Receipt Date: 20111123
  Transmission Date: 20120403
  Serious: Yes (Hospitalization)
  Sender: FDA-Public Use
  Company Number: TR-ELI_LILLY_AND_COMPANY-TR201111008159

PATIENT
  Age: 33 Year
  Sex: Male
  Weight: 77 kg

DRUGS (2)
  1. OLANZAPINE [Suspect]
     Indication: BIPOLAR DISORDER
     Dosage: 15 MG, QD
  2. DEPAKENE [Concomitant]
     Dosage: 500 MG, QD

REACTIONS (2)
  - ALANINE AMINOTRANSFERASE INCREASED [None]
  - DEEP VEIN THROMBOSIS [None]
